FAERS Safety Report 24014389 (Version 1)
Quarter: 2024Q2

REPORT INFORMATION
  Report Type: Spontaneous
  Country: US (occurrence: US)
  Receive Date: 20240626
  Receipt Date: 20240626
  Transmission Date: 20240715
  Serious: Yes (Hospitalization)
  Sender: FDA-Public Use
  Company Number: US-MYLANLABS-2024M1057364

PATIENT
  Age: 50 Year
  Sex: Male

DRUGS (4)
  1. HEPARIN [Suspect]
     Active Substance: HEPARIN SODIUM
     Indication: Coronary artery thrombosis
     Dosage: UNK
     Route: 065
  2. FONDAPARINUX [Suspect]
     Active Substance: FONDAPARINUX
     Indication: Coronary artery thrombosis
     Dosage: UNK
     Route: 065
  3. RIVAROXABAN [Suspect]
     Active Substance: RIVAROXABAN
     Indication: Coronary artery thrombosis
     Dosage: UNK
     Route: 065
  4. Immunoglobulin [Concomitant]
     Indication: Antiphospholipid syndrome
     Dosage: UNK
     Route: 042

REACTIONS (3)
  - Heparin-induced thrombocytopenia [Unknown]
  - Haematochezia [Unknown]
  - Drug ineffective [Unknown]
